FAERS Safety Report 7252370-7 (Version None)
Quarter: 2011Q1

REPORT INFORMATION
  Report Type: 
  Country: None (occurrence: None)
  Receive Date: 20110129
  Receipt Date: 20100312
  Transmission Date: 20110831
  Serious: No
  Sender: FDA-Public Use
  Company Number: PR-ABBOTT-10P-131-0632108-00

PATIENT
  Sex: Female
  Weight: 90.8 kg

DRUGS (11)
  1. HUMIRA [Suspect]
     Indication: RHEUMATOID ARTHRITIS
     Route: 058
     Dates: start: 20080101, end: 20100101
  2. SIMVASTATIN [Concomitant]
     Indication: BLOOD TRIGLYCERIDES ABNORMAL
     Route: 048
  3. HUMULIN 70/30 [Concomitant]
     Indication: DIABETES MELLITUS
     Route: 048
  4. ENALAPRIL MALEATE [Concomitant]
     Indication: HYPERTENSION
     Route: 048
  5. PENTOXIFYLLINE [Concomitant]
     Indication: PERIPHERAL VASCULAR DISORDER
     Route: 051
  6. AVAPRO [Concomitant]
     Indication: HYPERTENSION
     Route: 048
  7. METHOTREXATE [Concomitant]
     Indication: RHEUMATOID ARTHRITIS
     Dosage: 4 TABLETS PER WEEK
     Route: 048
  8. MINOXIDIL [Concomitant]
     Indication: HYPERTENSION
     Route: 048
  9. HYDROCHLOROTHIAZIDE [Concomitant]
     Indication: HYPERTENSION
     Route: 048
  10. CALCITRIOL [Concomitant]
     Indication: BONE DISORDER
     Route: 048
  11. GLIPIZIDE [Concomitant]
     Indication: DIABETES MELLITUS
     Route: 048

REACTIONS (2)
  - ANGIOPATHY [None]
  - HYPOAESTHESIA [None]
